FAERS Safety Report 5412617-6 (Version None)
Quarter: 2007Q3

REPORT INFORMATION
  Report Type: 
  Country: None (occurrence: None)
  Receive Date: 20070809
  Receipt Date: 20070725
  Transmission Date: 20080115
  Serious: Yes (Congenital Anomaly)
  Sender: FDA-Public Use
  Company Number: 159088ISR

PATIENT
  Age: 6 Month

DRUGS (4)
  1. DIAZEPAM [Suspect]
     Route: 064
  2. DIHYDROCODEINE BITARTRATE INJ [Suspect]
     Route: 064
  3. AMPHETAMINE SULFATE [Suspect]
     Route: 064
  4. METHADONE HCL [Suspect]
     Route: 064

REACTIONS (4)
  - DEVELOPMENTAL DELAY [None]
  - DRUG EXPOSURE DURING PREGNANCY [None]
  - NYSTAGMUS [None]
  - VISUAL DISTURBANCE [None]
